FAERS Safety Report 8364740-4 (Version None)
Quarter: 2012Q2

REPORT INFORMATION
  Report Type: 
  Country: None (occurrence: None)
  Receive Date: 20120516
  Receipt Date: 20120508
  Transmission Date: 20120825
  Serious: No
  Sender: FDA-Public Use
  Company Number: US-B.I. PHARMACEUTICALS,INC./RIDGEFIELD-2012-BP-10336BP

PATIENT
  Sex: Female

DRUGS (3)
  1. PRADAXA [Suspect]
  2. PRADAXA [Suspect]
  3. PRADAXA [Suspect]

REACTIONS (2)
  - HAEMORRHOIDS [None]
  - HAEMORRHOIDAL HAEMORRHAGE [None]
